FAERS Safety Report 12693895 (Version 2)
Quarter: 2016Q3

REPORT INFORMATION
  Report Type: Spontaneous
  Country: US (occurrence: US)
  Receive Date: 20160829
  Receipt Date: 20160902
  Transmission Date: 20161109
  Serious: No
  Sender: FDA-Public Use
  Company Number: US-PFIZER INC-2016396392

PATIENT
  Sex: Female

DRUGS (2)
  1. GABAPENTIN. [Suspect]
     Active Substance: GABAPENTIN
     Dosage: TAKEN HER MORNING DOSE OF GABAPENTIN
     Route: 048
     Dates: start: 20160816, end: 20160816
  2. GABAPENTIN. [Suspect]
     Active Substance: GABAPENTIN
     Indication: DIABETIC NEUROPATHY
     Dosage: 600 MG, 3X/DAY
     Route: 048
     Dates: end: 20160817

REACTIONS (7)
  - Neck pain [Unknown]
  - Musculoskeletal pain [Unknown]
  - Drug ineffective for unapproved indication [Unknown]
  - Myalgia [Unknown]
  - Arthralgia [Unknown]
  - Fibromyalgia [Unknown]
  - Back pain [Unknown]
